FAERS Safety Report 13151792 (Version 4)
Quarter: 2019Q1

REPORT INFORMATION
  Report Type: Spontaneous
  Country: US (occurrence: US)
  Receive Date: 20170125
  Receipt Date: 20190110
  Transmission Date: 20190417
  Serious: Yes (Hospitalization, Other)
  Sender: FDA-Public Use
  Company Number: US-ACTELION-A-US2017-148748

PATIENT
  Age: 69 Year
  Sex: Female

DRUGS (1)
  1. OPSUMIT [Suspect]
     Active Substance: MACITENTAN
     Indication: PULMONARY ARTERIAL HYPERTENSION
     Dosage: 10 MG, QD
     Route: 048
     Dates: start: 20160620

REACTIONS (9)
  - Dyspnoea [Recovered/Resolved]
  - Oedema [Recovered/Resolved]
  - Neuropathy peripheral [Unknown]
  - Blood calcium decreased [Unknown]
  - Skin ulcer [Unknown]
  - Diabetes mellitus [Unknown]
  - Dialysis [Unknown]
  - Hypoacusis [Unknown]
  - Infection [Unknown]

NARRATIVE: CASE EVENT DATE: 20170113
